FAERS Safety Report 4351394-7 (Version None)
Quarter: 2004Q2

REPORT INFORMATION
  Report Type: 
  Country: None (occurrence: None)
  Receive Date: 20040428
  Receipt Date: 20040419
  Transmission Date: 20050107
  Serious: Yes (Hospitalization, Other)
  Sender: FDA-Public Use
  Company Number: USA-2004-0014584

PATIENT
  Age: 54 Year
  Sex: Male

DRUGS (8)
  1. OXYCONTIN [Suspect]
     Indication: PAIN
     Dosage: 80 MG, SEE TEXT, OTHER
  2. LOMOTIL [Concomitant]
  3. AMITRIPTYLINE HCL [Concomitant]
  4. RIFAMPIN [Concomitant]
  5. CALCITONIN (CALCITONIN) [Concomitant]
  6. GABAPENTIN [Concomitant]
  7. THEOPHYLLINE [Concomitant]
  8. METOPROLOL (METOPROLOL) [Concomitant]

REACTIONS (2)
  - LEG AMPUTATION [None]
  - MEDICATION ERROR [None]
